FAERS Safety Report 13162895 (Version 1)
Quarter: 2017Q1

REPORT INFORMATION
  Report Type: Spontaneous
  Country: US (occurrence: US)
  Receive Date: 20170127
  Receipt Date: 20170127
  Transmission Date: 20170428
  Serious: Yes (Disabling, Other)
  Sender: FDA-Public Use
  Company Number: None

PATIENT
  Age: 67 Year
  Sex: Female
  Weight: 59.4 kg

DRUGS (12)
  1. LEVOTHYROXINE. [Concomitant]
     Active Substance: LEVOTHYROXINE
  2. HYALURONIC ACID [Concomitant]
     Active Substance: HYALURONIC ACID
  3. MELATONIN [Concomitant]
     Active Substance: MELATONIN
  4. CORTISONE [Concomitant]
     Active Substance: CORTISONE\HYDROCORTISONE
  5. COD LIVER OIL [Concomitant]
     Active Substance: COD LIVER OIL
  6. VIT K2 [Concomitant]
  7. SLEEP BLEND SP-17 [Concomitant]
  8. PROLIA [Suspect]
     Active Substance: DENOSUMAB
     Indication: OSTEOPOROSIS
     Dosage: INTRAMUSCULAR 1X EVERY 6 MONTHS?
     Route: 030
     Dates: start: 20170119
  9. CALCIUM [Concomitant]
     Active Substance: CALCIUM
  10. PAU D^ ARCO [Concomitant]
  11. LUNESTA [Concomitant]
     Active Substance: ESZOPICLONE
  12. PROLIA [Concomitant]
     Active Substance: DENOSUMAB

REACTIONS (1)
  - Cystitis noninfective [None]

NARRATIVE: CASE EVENT DATE: 20170119
